FAERS Safety Report 16543909 (Version 2)
Quarter: 2019Q3

REPORT INFORMATION
  Report Type: Report from Study
  Country: JP (occurrence: JP)
  Receive Date: 20190709
  Receipt Date: 20190822
  Transmission Date: 20191004
  Serious: Yes (Life-Threatening, Hospitalization, Disabling)
  Sender: FDA-Public Use
  Company Number: JP-EISAI MEDICAL RESEARCH-EC-2018-047444

PATIENT

DRUGS (2)
  1. LENVATINIB [Suspect]
     Active Substance: LENVATINIB
     Route: 048
     Dates: end: 20190601
  2. LENVATINIB [Suspect]
     Active Substance: LENVATINIB
     Indication: THYROID CANCER
     Route: 048

REACTIONS (2)
  - Cerebral haemorrhage [Recovered/Resolved with Sequelae]
  - Status epilepticus [Recovered/Resolved]

NARRATIVE: CASE EVENT DATE: 20181029
